FAERS Safety Report 17988158 (Version 1)
Quarter: 2020Q3

REPORT INFORMATION
  Report Type: Spontaneous
  Country: US (occurrence: US)
  Receive Date: 20200706
  Receipt Date: 20200706
  Transmission Date: 20201103
  Serious: Yes (Hospitalization)
  Sender: FDA-Public Use
  Company Number: None

PATIENT
  Age: 37 Year
  Sex: Female
  Weight: 60.75 kg

DRUGS (6)
  1. HOME GLUCOSE MONITOR [Concomitant]
  2. PRENATAL VITAMIN [Concomitant]
     Active Substance: VITAMINS
  3. COLACE [Concomitant]
     Active Substance: DOCUSATE SODIUM
  4. NITROFURANTOIN MOMO/MAC 100 MG CAPS [Suspect]
     Active Substance: NITROFURANTOIN\NITROFURANTOIN MONOHYDRATE
     Indication: URINARY TRACT INFECTION
     Dosage: ?          QUANTITY:14 CAPSULE(S);?
     Route: 048
     Dates: start: 20200623, end: 20200630
  5. TYLENOL [Concomitant]
     Active Substance: ACETAMINOPHEN
  6. BENADRYL [Concomitant]
     Active Substance: DIPHENHYDRAMINE HYDROCHLORIDE

REACTIONS (12)
  - Chills [None]
  - Dyspnoea [None]
  - Fatigue [None]
  - Foetal heart rate increased [None]
  - Cough [None]
  - Cognitive disorder [None]
  - Myalgia [None]
  - Hot flush [None]
  - Exposure during pregnancy [None]
  - Panic attack [None]
  - Back pain [None]
  - Pyrexia [None]

NARRATIVE: CASE EVENT DATE: 20200629
